FAERS Safety Report 7557400-0 (Version None)
Quarter: 2011Q2

REPORT INFORMATION
  Report Type: 
  Country: None (occurrence: None)
  Receive Date: 20110620
  Receipt Date: 20110610
  Transmission Date: 20111010
  Serious: Yes (Other)
  Sender: FDA-Public Use
  Company Number: US-JNJFOC-20110606166

PATIENT
  Sex: Female
  Weight: 68.04 kg

DRUGS (4)
  1. CALCIUM CARBONATE [Concomitant]
     Indication: PRODUCT USED FOR UNKNOWN INDICATION
     Route: 065
  2. NUCYNTA [Suspect]
     Indication: ARTHRALGIA
     Route: 048
     Dates: start: 20110415, end: 20110417
  3. LISINOPRIL [Concomitant]
     Indication: BLOOD PRESSURE
     Route: 048
     Dates: start: 20030101
  4. ASPIRIN [Concomitant]
     Indication: PRODUCT USED FOR UNKNOWN INDICATION
     Route: 048
     Dates: start: 20030101

REACTIONS (3)
  - HYPERSOMNIA [None]
  - HYPOKINESIA [None]
  - DIZZINESS [None]
